FAERS Safety Report 9252634 (Version 1)
Quarter: 2013Q1

REPORT INFORMATION
  Report Type: Spontaneous
  Country: US (occurrence: None)
  Receive Date: 20130305
  Receipt Date: 20130305
  Transmission Date: 20140127
  Serious: Yes (Other)
  Sender: FDA-Public Use
  Company Number: 163-21880-12083224

PATIENT
  Age: 68 Year
  Sex: Male

DRUGS (4)
  1. REVLIMID [Suspect]
     Indication: PLASMA CELL MYELOMA
     Dosage: 14 IN 14 D
     Route: 048
     Dates: start: 20120814
  2. TYLENOL PM EXTRA STRENGTH (DOZOL) [Concomitant]
  3. BENAZEPRIL HCL (BENAZEPRIL HYDROCHLORIDE) [Concomitant]
  4. GLUCOSAMINE (GLUCOSAMINE) [Concomitant]

REACTIONS (2)
  - Rash generalised [None]
  - Local swelling [None]
